FAERS Safety Report 4516552-7 (Version None)
Quarter: 2004Q4

REPORT INFORMATION
  Report Type: 
  Country: None (occurrence: None)
  Receive Date: 20041012
  Receipt Date: 20040621
  Transmission Date: 20050328
  Serious: No
  Sender: FDA-Public Use
  Company Number: A03200401985

PATIENT
  Age: 65 Year
  Sex: Male

DRUGS (7)
  1. UROXATRAL [Suspect]
     Indication: BENIGN PROSTATIC HYPERPLASIA
     Dosage: 10 MG OD  - ORAL
     Route: 048
     Dates: start: 20040618
  2. UROXATRAL [Suspect]
     Indication: URINARY RETENTION
     Dosage: 10 MG OD  - ORAL
     Route: 048
     Dates: start: 20040618
  3. LATANOPROST [Concomitant]
  4. OMEPRAZOLE [Concomitant]
  5. SIMVASTATIN [Concomitant]
  6. ATENOLOL [Concomitant]
  7. ACETYLSALICYLIC ACID [Concomitant]

REACTIONS (2)
  - DIZZINESS [None]
  - VISION BLURRED [None]
